FAERS Safety Report 21623413 (Version 3)
Quarter: 2023Q1

REPORT INFORMATION
  Report Type: Spontaneous
  Country: JP (occurrence: JP)
  Receive Date: 20221121
  Receipt Date: 20230125
  Transmission Date: 20230417
  Serious: Yes (Other)
  Sender: FDA-Public Use
  Company Number: JP-ONO-2022JP030985

PATIENT
  Age: 8 Decade
  Sex: Male

DRUGS (10)
  1. OPDIVO [Suspect]
     Active Substance: NIVOLUMAB
     Indication: Oesophageal carcinoma
     Dosage: UNK
     Route: 041
     Dates: start: 20220106, end: 20220307
  2. LEVOTHYROXINE SODIUM [Concomitant]
     Active Substance: LEVOTHYROXINE SODIUM
     Indication: Product used for unknown indication
     Dosage: 100 UG, EVERYDAY, AFTER BREAKFAST
     Route: 048
  3. LANSOPRAZOLE [Concomitant]
     Active Substance: LANSOPRAZOLE
     Indication: Product used for unknown indication
     Dosage: 15 MG, EVERYDAY, AFTER BREAKFAST
     Route: 048
  4. CARBOCYSTEINE [Concomitant]
     Active Substance: CARBOCYSTEINE
     Indication: Product used for unknown indication
     Dosage: 1 G, Q8H, AFTER EACH MEAL
     Route: 048
  5. SEKICODE [AMMONIUM CHLORIDE;DIHYDROCODEINE PHOSPHATE;EPHEDRINE HYDROCH [Concomitant]
     Indication: Product used for unknown indication
     Dosage: 5 MILLILITER, Q8H, AFTER EACH MEAL
     Route: 048
  6. HEPARINOID [Concomitant]
     Indication: Product used for unknown indication
     Dosage: APPLIED 2-3 TIMES A DAY
     Route: 061
  7. DIPHENHYDRAMINE [Concomitant]
     Active Substance: DIPHENHYDRAMINE
     Indication: Product used for unknown indication
     Dosage: APPLIED 2-3 TIMES A DAY
     Route: 061
  8. ALBUTEROL SULFATE [Concomitant]
     Active Substance: ALBUTEROL SULFATE
     Indication: Product used for unknown indication
     Dosage: UNK, PRN (AS NECESSARY)
     Route: 055
  9. CALONAL [Concomitant]
     Active Substance: ACETAMINOPHEN
     Indication: Pyrexia
     Dosage: 1 G, AT THE ONSET OF FEVER
     Route: 048
  10. TRULICITY [Concomitant]
     Active Substance: DULAGLUTIDE
     Indication: Product used for unknown indication
     Dosage: 0.5 MILLILITER
     Route: 058

REACTIONS (2)
  - Polychondritis [Recovering/Resolving]
  - Renal tubular disorder [Recovered/Resolved]

NARRATIVE: CASE EVENT DATE: 20220201
